FAERS Safety Report 13717081 (Version 1)
Quarter: 2017Q3

REPORT INFORMATION
  Report Type: Spontaneous
  Country: US (occurrence: US)
  Receive Date: 20170704
  Receipt Date: 20170704
  Transmission Date: 20171127
  Serious: Yes (Other)
  Sender: FDA-Public Use
  Company Number: None

PATIENT
  Age: 60 Year
  Sex: Female
  Weight: 84.6 kg

DRUGS (9)
  1. MOTILIUM [Concomitant]
     Active Substance: DOMPERIDONE
  2. BELVIQ [Concomitant]
     Active Substance: LORCASERIN HYDROCHLORIDE
  3. FEMRING [Suspect]
     Active Substance: ESTRADIOL ACETATE
     Indication: MENOPAUSAL SYMPTOMS
     Dosage: ?          OTHER STRENGTH:MG;QUANTITY:1 VAGINAL RING;OTHER FREQUENCY:EVERY 3 ^MONTHS;?
     Route: 067
     Dates: start: 20170607, end: 20170628
  4. PERCOCET [Concomitant]
     Active Substance: ACETAMINOPHEN\OXYCODONE HYDROCHLORIDE
  5. FLEXERIL [Concomitant]
     Active Substance: CYCLOBENZAPRINE HYDROCHLORIDE
  6. LYRICA [Concomitant]
     Active Substance: PREGABALIN
  7. SNYTHROID [Concomitant]
  8. OXYCONTIN [Concomitant]
     Active Substance: OXYCODONE HYDROCHLORIDE
  9. PLAQUNIL [Concomitant]

REACTIONS (3)
  - Urinary tract infection [None]
  - Urethral pain [None]
  - Bladder pain [None]

NARRATIVE: CASE EVENT DATE: 20170607
